FAERS Safety Report 5679335-0 (Version None)
Quarter: 2008Q1

REPORT INFORMATION
  Report Type: 
  Country: None (occurrence: None)
  Receive Date: 20080325
  Receipt Date: 20080317
  Transmission Date: 20080703
  Serious: Yes (Hospitalization, Other)
  Sender: FDA-Public Use
  Company Number: US-ELI_LILLY_AND_COMPANY-US200712002548

PATIENT
  Sex: Female
  Weight: 118.37 kg

DRUGS (16)
  1. HUMALOG [Suspect]
     Dosage: UNK, AS NEEDED
  2. FORTEO [Suspect]
     Indication: OSTEOPOROSIS
     Dates: start: 20071128
  3. FOSAMAX [Concomitant]
  4. BONIVA [Concomitant]
  5. LANTUS [Concomitant]
     Indication: DIABETES MELLITUS
     Dosage: 20 U, 2/D
  6. LEXAPRO [Concomitant]
     Dosage: 20 MG, UNK
  7. PROTONIX [Concomitant]
  8. SYNTHROID [Concomitant]
     Dosage: 100 UG, DAILY (1/D)
  9. LIPITOR [Concomitant]
  10. BENICAR HCT [Concomitant]
  11. METENIX 5 [Concomitant]
  12. OYSTER SHELL CALCIUM WITH VITAMIN D/01746301/ [Concomitant]
     Dosage: 500 MG, 3/D
  13. ASCORBIC ACID [Concomitant]
     Dosage: 500 MG, DAILY (1/D)
  14. AMBIEN [Concomitant]
     Indication: INSOMNIA
     Dosage: 10 MG, OTHER
  15. VITAMIN D [Concomitant]
     Dosage: 50000 IU, WEEKLY (1/W)
  16. CENTRUM SILVER [Concomitant]
     Dosage: UNK, DAILY (1/D)

REACTIONS (26)
  - ARTHRALGIA [None]
  - ARTHROPATHY [None]
  - AUTOIMMUNE THYROIDITIS [None]
  - BLOOD GLUCOSE INCREASED [None]
  - CATARACT [None]
  - CERVICAL VERTEBRAL FRACTURE [None]
  - DYSGEUSIA [None]
  - FALL [None]
  - FEMUR FRACTURE [None]
  - GAIT DISTURBANCE [None]
  - GALLBLADDER OPERATION [None]
  - HYSTERECTOMY [None]
  - JOINT ARTHROPLASTY [None]
  - JOINT DISLOCATION [None]
  - JOINT SWELLING [None]
  - LUMBAR SPINAL STENOSIS [None]
  - LUMBAR VERTEBRAL FRACTURE [None]
  - OEDEMA PERIPHERAL [None]
  - OSTEOPOROSIS [None]
  - OVERWEIGHT [None]
  - PATELLA FRACTURE [None]
  - STOMACH DISCOMFORT [None]
  - UPPER LIMB FRACTURE [None]
  - VISUAL ACUITY REDUCED [None]
  - WEIGHT BEARING DIFFICULTY [None]
  - WRIST FRACTURE [None]
